FAERS Safety Report 8323123 (Version 2)
Quarter: 2013Q3

REPORT INFORMATION
  Report Type: Report from Study
  Country: ES (occurrence: ES)
  Receive Date: 20120105
  Receipt Date: 20130812
  Transmission Date: 20140515
  Serious: Yes (Death)
  Sender: FDA-Public Use
  Company Number: ES-ROCHE-1025703

PATIENT
  Age: 54 Year
  Sex: Male
  Weight: 90 kg

DRUGS (9)
  1. OSELTAMIVIR [Suspect]
     Indication: INFLUENZA
     Route: 042
     Dates: start: 20101227
  2. OMEPRAZOLE [Concomitant]
     Route: 042
     Dates: start: 20101227, end: 20110104
  3. DOPAMINE [Concomitant]
     Route: 042
     Dates: start: 20101227, end: 20110104
  4. FUROSEMIDE [Concomitant]
     Route: 042
     Dates: start: 20101227, end: 20110104
  5. INSULIN [Concomitant]
     Route: 042
     Dates: start: 20101227, end: 20110104
  6. MORPHINE [Concomitant]
     Route: 042
     Dates: start: 20101227, end: 20110104
  7. PARACETAMOL [Concomitant]
     Route: 042
     Dates: start: 20101227, end: 20110104
  8. CEFTRIAXONE [Concomitant]
     Route: 042
     Dates: start: 20101227, end: 20110104
  9. AZITHROMYCIN [Concomitant]
     Route: 042
     Dates: start: 20101227, end: 20110104

REACTIONS (1)
  - Influenza [Fatal]
